FAERS Safety Report 5335641-0 (Version None)
Quarter: 2007Q2

REPORT INFORMATION
  Report Type: 
  Country: None (occurrence: None)
  Receive Date: 20070322
  Receipt Date: 20070110
  Transmission Date: 20071010
  Serious: No
  Sender: FDA-Public Use
  Company Number: 2007US000102

PATIENT
  Age: 62 Year
  Sex: Male

DRUGS (3)
  1. VESICARE [Suspect]
     Indication: DRUG USE FOR UNKNOWN INDICATION
     Dosage: 5 MG, ORAL
     Route: 048
  2. TYLENOL W/ CODEINE NO. 3 [Concomitant]
  3. ANTI-DIABETICS [Concomitant]

REACTIONS (2)
  - DISORIENTATION [None]
  - ROAD TRAFFIC ACCIDENT [None]
